FAERS Safety Report 4745278-X (Version None)
Quarter: 2005Q3

REPORT INFORMATION
  Report Type: 
  Country: None (occurrence: None)
  Receive Date: 20050812
  Receipt Date: 20050803
  Transmission Date: 20060218
  Serious: Yes (Hospitalization)
  Sender: FDA-Public Use
  Company Number: 2005110781

PATIENT
  Age: 75 Year
  Sex: Female

DRUGS (5)
  1. ZOLOFT [Suspect]
     Indication: DEPRESSION
     Dosage: 50 MG (50 MG, 1 IN 1D), ORAL
     Route: 048
     Dates: start: 20050501, end: 20050601
  2. MODURETIC 5-50 [Suspect]
     Indication: ILL-DEFINED DISORDER
     Dosage: 1 IN 1 D), ORAL
     Route: 048
  3. XANAX [Concomitant]
  4. PREDNISONE (PREDNSIONE) [Concomitant]
  5. PLENDIL [Concomitant]

REACTIONS (15)
  - AGITATION [None]
  - ANOREXIA [None]
  - BLOOD PRESSURE SYSTOLIC INCREASED [None]
  - DIARRHOEA [None]
  - ELECTROCARDIOGRAM ST SEGMENT DEPRESSION [None]
  - EMPHYSEMA [None]
  - FEELING ABNORMAL [None]
  - HYPOKALAEMIA [None]
  - HYPONATRAEMIA [None]
  - INSOMNIA [None]
  - PARAESTHESIA [None]
  - PARAESTHESIA ORAL [None]
  - TACHYPNOEA [None]
  - TREATMENT NONCOMPLIANCE [None]
  - TREMOR [None]
